FAERS Safety Report 13587261 (Version 2)
Quarter: 2017Q2

REPORT INFORMATION
  Report Type: Spontaneous
  Country: BR (occurrence: BR)
  Receive Date: 20170526
  Receipt Date: 20170607
  Transmission Date: 20170830
  Serious: Yes (Death, Other)
  Sender: FDA-Public Use
  Company Number: BR-PFIZER INC-2017231852

PATIENT

DRUGS (1)
  1. DOSTINEX [Suspect]
     Active Substance: CABERGOLINE
     Dosage: UNK
     Route: 064
     Dates: start: 201612

REACTIONS (3)
  - Maternal exposure during pregnancy [Fatal]
  - Premature baby [Unknown]
  - Death [Fatal]

NARRATIVE: CASE EVENT DATE: 201612
